FAERS Safety Report 6894301-5 (Version None)
Quarter: 2010Q3

REPORT INFORMATION
  Report Type: 
  Country: None (occurrence: None)
  Receive Date: 20100802
  Receipt Date: 20100726
  Transmission Date: 20110219
  Serious: Yes (Life-Threatening, Hospitalization)
  Sender: FDA-Public Use
  Company Number: IT-KINGPHARMUSA00001-K201000935

PATIENT
  Age: 40 Year
  Sex: Male

DRUGS (5)
  1. ALTACE [Suspect]
     Indication: PORTAL HYPERTENSION
     Dosage: 2.5 MG, QD
     Dates: start: 20080101, end: 20080101
  2. ALTACE [Suspect]
     Indication: PROTEINURIA
  3. LOSARTAN POTASSIUM [Suspect]
     Indication: PORTAL HYPERTENSION
     Dosage: 50 MG, QD
     Dates: start: 20071201, end: 20080101
  4. PROPRANOLOL [Concomitant]
     Indication: HAEMORRHAGE PROPHYLAXIS
  5. FUROSEMIDE [Concomitant]
     Indication: GLOMERULONEPHRITIS MEMBRANOUS
     Dosage: 125 MG, QD

REACTIONS (5)
  - AMMONIA INCREASED [None]
  - DRUG INTERACTION [None]
  - ELECTROENCEPHALOGRAM ABNORMAL [None]
  - HEPATIC ENCEPHALOPATHY [None]
  - LOSS OF CONSCIOUSNESS [None]
